FAERS Safety Report 6529596-0 (Version None)
Quarter: 2010Q1

REPORT INFORMATION
  Report Type: 
  Country: None (occurrence: None)
  Receive Date: 20100104
  Receipt Date: 20091201
  Transmission Date: 20100710
  Serious: Yes (Life-Threatening, Hospitalization)
  Sender: FDA-Public Use
  Company Number: THYM-1001312

PATIENT
  Age: 60 Year
  Sex: Male
  Weight: 59 kg

DRUGS (12)
  1. THYMOGLOBULIN [Suspect]
     Indication: APLASTIC ANAEMIA
     Dosage: 213 MG, QD, INTRAVENOUS
     Route: 042
     Dates: start: 20090202, end: 20090206
  2. METENOLONE ACETATE (METENOLONE ACETATE) [Concomitant]
  3. DEFERASIROX (DEFERASIROX) [Concomitant]
  4. FILGRASTIM (FILGRASTIM) [Concomitant]
  5. METHYLPREDNISOLONE [Concomitant]
  6. DEXCHLORPHENIRAMINE MALEATE [Concomitant]
  7. FEXOFENADINE HYDROCHLORIDE [Concomitant]
  8. SULFAMETHOPRIM (SULFAMETHOXAZOLE, TRIMETHOPRIM) [Concomitant]
  9. PREDNISOLONE [Concomitant]
  10. AMOPHOTERICIN (AMPHOTERICIN B) [Concomitant]
  11. POVIDONE IODINE [Concomitant]
  12. CYCLOSPORINE [Concomitant]

REACTIONS (4)
  - BRONCHITIS [None]
  - FEBRILE NEUTROPENIA [None]
  - SEPTIC SHOCK [None]
  - ZYGOMYCOSIS [None]
